FAERS Safety Report 8942505 (Version 1)
Quarter: 2012Q4

REPORT INFORMATION
  Report Type: 
  Country: FR (occurrence: FR)
  Receive Date: 20121204
  Receipt Date: 20121204
  Transmission Date: 20130627
  Serious: Yes (Hospitalization)
  Sender: FDA-Public Use
  Company Number: FR-009507513-1211FRA012739

PATIENT
  Age: 80 Year
  Sex: Male

DRUGS (7)
  1. TIENAM [Suspect]
     Indication: INFECTION
     Dosage: UNK
     Route: 030
     Dates: start: 20120913, end: 20121011
  2. ZYVOXID [Suspect]
     Indication: INFECTION
     Dosage: 1 DF, bid
     Route: 048
     Dates: start: 20120913, end: 20121011
  3. INEXIUM [Suspect]
     Dosage: 40 mg, qd
     Route: 048
     Dates: end: 20121011
  4. PREVISCAN [Concomitant]
  5. INSULIN [Concomitant]
  6. TAHOR [Concomitant]
  7. DOLIPRANE [Concomitant]

REACTIONS (2)
  - Thrombocytopenia [Recovered/Resolved]
  - Epistaxis [Recovered/Resolved]
